FAERS Safety Report 8107885-6 (Version None)
Quarter: 2012Q1

REPORT INFORMATION
  Report Type: 
  Country: None (occurrence: None)
  Receive Date: 20120202
  Receipt Date: 20120130
  Transmission Date: 20120608
  Serious: Yes (Other)
  Sender: FDA-Public Use
  Company Number: JP-PFIZER INC-2012025103

PATIENT
  Age: 62 Year
  Sex: Male

DRUGS (4)
  1. AFINITOR [Concomitant]
  2. BEZATOL [Concomitant]
  3. LYRICA [Suspect]
     Dosage: 50 MG, DAILY
     Route: 048
     Dates: start: 20110803, end: 20110810
  4. LYRICA [Suspect]
     Dosage: 75 MG, DAILY
     Dates: start: 20110811

REACTIONS (1)
  - BLOOD CREATINE PHOSPHOKINASE INCREASED [None]
